FAERS Safety Report 17681067 (Version 5)
Quarter: 2020Q2

REPORT INFORMATION
  Report Type: Report from Study
  Country: CA (occurrence: CA)
  Receive Date: 20200417
  Receipt Date: 20200619
  Transmission Date: 20200714
  Serious: Yes (Other)
  Sender: FDA-Public Use
  Company Number: NVSC2020CA049909

PATIENT
  Age: 64 Year
  Sex: Female

DRUGS (5)
  1. COSENTYX [Suspect]
     Active Substance: SECUKINUMAB
     Dosage: 300 MG, QMO
     Route: 058
     Dates: start: 2020
  2. COSENTYX [Suspect]
     Active Substance: SECUKINUMAB
     Dosage: 300 MG, QMO
     Route: 058
     Dates: start: 20200612
  3. COSENTYX [Suspect]
     Active Substance: SECUKINUMAB
     Dosage: 300 MG, QMO
     Route: 058
  4. COSENTYX [Suspect]
     Active Substance: SECUKINUMAB
     Indication: PSORIATIC ARTHROPATHY
     Dosage: 300 MG, QW
     Route: 058
     Dates: start: 20200213
  5. REMICADE [Concomitant]
     Active Substance: INFLIXIMAB
     Indication: PRODUCT USED FOR UNKNOWN INDICATION
     Dosage: UNK
     Route: 065
     Dates: start: 201305

REACTIONS (12)
  - Fall [Unknown]
  - C-reactive protein increased [Unknown]
  - Eye irritation [Unknown]
  - Arthralgia [Unknown]
  - Upper limb fracture [Unknown]
  - Eye pruritus [Unknown]
  - Headache [Unknown]
  - Joint injury [Unknown]
  - Rhinorrhoea [Unknown]
  - Alopecia [Unknown]
  - Pain [Unknown]
  - Decreased activity [Unknown]

NARRATIVE: CASE EVENT DATE: 2020
